FAERS Safety Report 10274684 (Version 1)
Quarter: 2014Q3

REPORT INFORMATION
  Report Type: Report from Study
  Country: PL (occurrence: PL)
  Receive Date: 20140702
  Receipt Date: 20140702
  Transmission Date: 20150326
  Serious: Yes (Death)
  Sender: FDA-Public Use
  Company Number: PL-BAXTER-2014BAX034589

PATIENT
  Age: 30 Year
  Sex: Male

DRUGS (6)
  1. VINBLASTINE [Suspect]
     Active Substance: VINBLASTINE
     Indication: EXTRAGONADAL PRIMARY GERM CELL TUMOUR
     Route: 042
     Dates: end: 200811
  2. OXALIPLATIN. [Suspect]
     Active Substance: OXALIPLATIN
     Indication: EXTRAGONADAL PRIMARY GERM CELL TUMOUR
     Route: 065
     Dates: end: 200903
  3. GEMCITABINE [Suspect]
     Active Substance: GEMCITABINE\GEMCITABINE HYDROCHLORIDE
     Indication: EXTRAGONADAL PRIMARY GERM CELL TUMOUR
     Route: 065
     Dates: end: 200903
  4. CISPLATIN. [Suspect]
     Active Substance: CISPLATIN
     Indication: EXTRAGONADAL PRIMARY GERM CELL TUMOUR
     Route: 042
     Dates: end: 200811
  5. PACLITAXEL. [Suspect]
     Active Substance: PACLITAXEL
     Indication: EXTRAGONADAL PRIMARY GERM CELL TUMOUR
     Route: 065
     Dates: end: 200903
  6. HOLOXAN [Suspect]
     Active Substance: IFOSFAMIDE
     Indication: EXTRAGONADAL PRIMARY GERM CELL TUMOUR
     Route: 042
     Dates: end: 200811

REACTIONS (1)
  - Disease progression [Fatal]

NARRATIVE: CASE EVENT DATE: 200809
